FAERS Safety Report 13219354 (Version 2)
Quarter: 2017Q1

REPORT INFORMATION
  Report Type: Report from Study
  Country: US (occurrence: US)
  Receive Date: 20170210
  Receipt Date: 20170216
  Transmission Date: 20170428
  Serious: Yes (Hospitalization, Other)
  Sender: FDA-Public Use
  Company Number: US-GILEAD-2017-0257329

PATIENT
  Age: 67 Year
  Sex: Female

DRUGS (2)
  1. AMBRISENTAN [Suspect]
     Active Substance: AMBRISENTAN
     Indication: PRODUCT USED FOR UNKNOWN INDICATION
     Dosage: 10 MG, QD
     Route: 065
     Dates: start: 20170106, end: 20170207
  2. AMBRISENTAN [Suspect]
     Active Substance: AMBRISENTAN
     Dosage: 10 MG, UNK
     Route: 065
     Dates: start: 20170110

REACTIONS (8)
  - Diarrhoea [Unknown]
  - Hypotension [Unknown]
  - Vomiting [Unknown]
  - Drug ineffective [Unknown]
  - Confusional state [Unknown]
  - Acute kidney injury [Unknown]
  - Pneumonia [Unknown]
  - Unevaluable event [Unknown]
